FAERS Safety Report 13699853 (Version 1)
Quarter: 2017Q2

REPORT INFORMATION
  Report Type: Spontaneous
  Country: IN (occurrence: IN)
  Receive Date: 20170629
  Receipt Date: 20170629
  Transmission Date: 20170830
  Serious: No
  Sender: FDA-Public Use
  Company Number: IN-LUPIN PHARMACEUTICALS INC.-2017-02269

PATIENT
  Sex: Male

DRUGS (5)
  1. MOXIFLOXACIN HYDROCHLORIDE. [Suspect]
     Active Substance: MOXIFLOXACIN HYDROCHLORIDE
     Indication: LOWER RESPIRATORY TRACT INFECTION
     Dosage: 1 DF, QD
     Route: 048
     Dates: start: 20170502
  2. LIZOFORCE 600 [Concomitant]
     Indication: LOWER RESPIRATORY TRACT INFECTION
     Dosage: 1 DF, QD
     Route: 048
     Dates: start: 20170502
  3. CRIXAN 500 [Concomitant]
     Indication: LOWER RESPIRATORY TRACT INFECTION
     Dosage: 1 DF, QD
     Dates: start: 20170502
  4. PROTOMID 250 [Concomitant]
     Indication: LOWER RESPIRATORY TRACT INFECTION
     Dosage: 1 DF, QD
     Dates: start: 20170502
  5. MACOX PLUS 600 [Concomitant]
     Indication: LOWER RESPIRATORY TRACT INFECTION
     Dosage: 1 DF, QD
     Route: 048
     Dates: start: 20170502

REACTIONS (1)
  - Vomiting [Not Recovered/Not Resolved]

NARRATIVE: CASE EVENT DATE: 20170502
